FAERS Safety Report 23623053 (Version 1)
Quarter: 2024Q1

REPORT INFORMATION
  Report Type: Report from Study
  Country: US (occurrence: US)
  Receive Date: 20240312
  Receipt Date: 20240312
  Transmission Date: 20240409
  Serious: Yes (Hospitalization, Other)
  Sender: FDA-Public Use
  Company Number: US-OTSUKA-2024_006059

PATIENT
  Sex: Female
  Weight: 81.18 kg

DRUGS (4)
  1. ARIPIPRAZOLE [Suspect]
     Active Substance: ARIPIPRAZOLE
     Indication: Anxiety
     Dosage: 2 MG (LMP 7 WEEKS PREGNANT)
     Route: 065
     Dates: start: 20200312, end: 20200430
  2. FLUOXETINE [Concomitant]
     Active Substance: FLUOXETINE HYDROCHLORIDE
     Indication: Anxiety
     Dosage: LMP 7 WEEK PREGNANT
     Route: 065
     Dates: start: 20200312, end: 20200430
  3. HYDROXYZINE [Concomitant]
     Active Substance: HYDROXYZINE HYDROCHLORIDE
     Indication: Anxiety
     Dosage: LMP 2 WEEKS PREGNANT
     Route: 065
     Dates: start: 20200312, end: 20200326
  4. BUSPIRONE [Concomitant]
     Active Substance: BUSPIRONE HYDROCHLORIDE
     Indication: Anxiety
     Dosage: LMP 1 WEEK PREGNANT
     Route: 065
     Dates: start: 20200312, end: 20200319

REACTIONS (14)
  - Hypothyroidism [Unknown]
  - Premature labour [Recovered/Resolved]
  - Caesarean section [Unknown]
  - Cephalo-pelvic disproportion [Unknown]
  - Prolonged labour [Unknown]
  - Postpartum haemorrhage [Recovered/Resolved]
  - Anaemia postoperative [Recovered/Resolved]
  - Full blood count increased [Recovered/Resolved]
  - Presyncope [Recovered/Resolved]
  - Nausea [Recovered/Resolved]
  - Vomiting [Recovered/Resolved]
  - Hypertension [Recovered/Resolved]
  - Product use in unapproved indication [Unknown]
  - Maternal exposure during pregnancy [Unknown]

NARRATIVE: CASE EVENT DATE: 20200101
